FAERS Safety Report 8349111-9 (Version None)
Quarter: 2012Q2

REPORT INFORMATION
  Report Type: 
  Country: None (occurrence: None)
  Receive Date: 20120508
  Receipt Date: 20120424
  Transmission Date: 20120825
  Serious: Yes (Hospitalization)
  Sender: FDA-Public Use
  Company Number: USW201204-000071

PATIENT
  Sex: Male

DRUGS (1)
  1. APOKYN [Suspect]
     Indication: PARKINSON'S DISEASE
     Dosage: VIA PUMP FOR A YEAR, 4 ML IN 2 HOURS
     Dates: start: 20120424, end: 20120424

REACTIONS (3)
  - FALL [None]
  - INCORRECT DRUG ADMINISTRATION DURATION [None]
  - INCORRECT DOSE ADMINISTERED [None]
